FAERS Safety Report 13518412 (Version 1)
Quarter: 2017Q2

REPORT INFORMATION
  Report Type: Spontaneous
  Country: US (occurrence: US)
  Receive Date: 20170505
  Receipt Date: 20170505
  Transmission Date: 20170830
  Serious: Yes (Other)
  Sender: FDA-Public Use
  Company Number: None

PATIENT
  Age: 63 Year
  Sex: Male
  Weight: 73.8 kg

DRUGS (3)
  1. ASPRIN [Concomitant]
     Active Substance: ASPIRIN
  2. ATORVASTATIN [Suspect]
     Active Substance: ATORVASTATIN
     Indication: BLOOD CHOLESTEROL
     Dosage: ?          QUANTITY:30 TABLET(S);?
     Route: 048
     Dates: start: 20160701, end: 20160717
  3. IBPROFEN [Concomitant]

REACTIONS (2)
  - Depression [None]
  - Anger [None]

NARRATIVE: CASE EVENT DATE: 20160701
